FAERS Safety Report 8410981-7 (Version None)
Quarter: 2012Q2

REPORT INFORMATION
  Report Type: 
  Country: None (occurrence: None)
  Receive Date: 20120529
  Receipt Date: 20060329
  Transmission Date: 20120825
  Serious: Yes (Other)
  Sender: FDA-Public Use
  Company Number: 15691-USA-06-0944

PATIENT
  Age: 77 Year
  Sex: Male

DRUGS (11)
  1. CARVEDILOL [Concomitant]
  2. ISOSORBIDE DINITRATE [Concomitant]
  3. TOLVAPTAN (TOLVAPTAN(V4.1)) 30MG [Suspect]
     Indication: CARDIAC FAILURE CONGESTIVE
     Dosage: 30 MG, QD, ORAL
     Route: 048
     Dates: start: 20050531
  4. FEXOFENADINE HYDROCHLORIDE [Concomitant]
  5. LIPITOR [Concomitant]
  6. EPLERENONE [Concomitant]
  7. METOLAZONE [Concomitant]
  8. POTASSIUM CHLORIDE [Concomitant]
  9. PSEUDOEPHEDRINE HYDROCHLORIDE (CARBINOXAMINE MALEATE (PSEUDOEPHEDRINE [Concomitant]
  10. BUMETANIDE [Concomitant]
  11. TAMSULOSIN HCL [Concomitant]

REACTIONS (3)
  - SYNCOPE [None]
  - PULMONARY CONGESTION [None]
  - ATRIAL FLUTTER [None]
